FAERS Safety Report 5776273-X (Version None)
Quarter: 2008Q2

REPORT INFORMATION
  Report Type: 
  Country: None (occurrence: None)
  Receive Date: 20080616
  Receipt Date: 20080603
  Transmission Date: 20081010
  Serious: Yes (Other)
  Sender: FDA-Public Use
  Company Number: 1-16227045

PATIENT
  Age: 49 Year
  Sex: Female
  Weight: 49.8957 kg

DRUGS (1)
  1. FLUOCINONIDE [Suspect]
     Indication: RASH
     Dosage: TWICE DAILY, CUTANEOUS
     Route: 003
     Dates: start: 20080501, end: 20080531

REACTIONS (2)
  - BENIGN NEOPLASM OF THYROID GLAND [None]
  - COUGH [None]
